FAERS Safety Report 19888341 (Version 1)
Quarter: 2021Q3

REPORT INFORMATION
  Report Type: Other
  Country: ES (occurrence: ES)
  Receive Date: 20210928
  Receipt Date: 20210928
  Transmission Date: 20211014
  Serious: Yes (Other)
  Sender: FDA-Public Use
  Company Number: ES-ROCHE-2917751

PATIENT

DRUGS (2)
  1. RITUXIMAB. [Suspect]
     Active Substance: RITUXIMAB
     Indication: AUTOIMMUNE UVEITIS
     Route: 065
  2. INFLIXIMAB [Suspect]
     Active Substance: INFLIXIMAB
     Indication: AUTOIMMUNE UVEITIS
     Route: 065

REACTIONS (8)
  - Cough [Unknown]
  - Dysgeusia [Unknown]
  - Diarrhoea [Unknown]
  - Anosmia [Unknown]
  - Off label use [Unknown]
  - Dyspnoea [Unknown]
  - Pyrexia [Unknown]
  - COVID-19 [Unknown]
